FAERS Safety Report 8140478-3 (Version None)
Quarter: 2012Q1

REPORT INFORMATION
  Report Type: 
  Country: None (occurrence: None)
  Receive Date: 20120216
  Receipt Date: 20120213
  Transmission Date: 20120608
  Serious: Yes (Hospitalization)
  Sender: FDA-Public Use
  Company Number: US-PFIZER INC-2012038810

PATIENT
  Sex: Male
  Weight: 71.2 kg

DRUGS (3)
  1. HYDROCORTISONE [Concomitant]
     Indication: ADRENAL DISORDER
     Dosage: UNK
  2. SUTENT [Suspect]
     Indication: HAEMATOLOGICAL MALIGNANCY
     Dosage: 50 MG, 1X/DAY
     Route: 048
     Dates: start: 20111228, end: 20120114
  3. AMLODIPINE [Concomitant]
     Indication: HYPERTENSION
     Dosage: UNK

REACTIONS (4)
  - BLOOD POTASSIUM INCREASED [None]
  - EAR PAIN [None]
  - BACK PAIN [None]
  - PAIN IN EXTREMITY [None]
